FAERS Safety Report 18362644 (Version 3)
Quarter: 2020Q4

REPORT INFORMATION
  Report Type: Report from Study
  Country: None (occurrence: PT)
  Receive Date: 20201009
  Receipt Date: 20201020
  Transmission Date: 20210114
  Serious: Yes (Other)
  Sender: FDA-Public Use
  Company Number: PT-ABBVIE-20K-130-3582726-00

PATIENT
  Age: 75 Year
  Sex: Female

DRUGS (5)
  1. DUODOPA [Suspect]
     Active Substance: CARBIDOPA\LEVODOPA
     Indication: PARKINSON^S DISEASE
     Dosage: 20 MG + 5 MG, MORNING DOSE 13,5ML ,MAINTENANCE 5 ML/H
     Route: 050
     Dates: start: 20200916, end: 202010
  2. ALPRAZOLAM. [Concomitant]
     Active Substance: ALPRAZOLAM
     Indication: ANXIETY
     Dosage: BEFORE DUODOPA
     Route: 048
  3. MEMANTINE. [Concomitant]
     Active Substance: MEMANTINE
     Indication: DEMENTIA
     Dosage: BEFORE DUODOPA
     Route: 048
  4. DUODOPA [Suspect]
     Active Substance: CARBIDOPA\LEVODOPA
     Dosage: MORNING DOSE: 16,5ML;MAINTENANCE:5.5ML/H?20 MG + 5 MG
     Route: 050
     Dates: start: 202010
  5. RIVASTIGMINE. [Concomitant]
     Active Substance: RIVASTIGMINE
     Indication: DEMENTIA
     Dosage: BEFORE DUODOPA
     Route: 062

REACTIONS (4)
  - Overdose [Unknown]
  - Hallucination, visual [Recovered/Resolved]
  - Dehydration [Recovered/Resolved]
  - Hallucination, visual [Unknown]

NARRATIVE: CASE EVENT DATE: 2020
